FAERS Safety Report 5237070-7 (Version None)
Quarter: 2007Q1

REPORT INFORMATION
  Report Type: 
  Country: None (occurrence: None)
  Receive Date: 20070209
  Receipt Date: 20070126
  Transmission Date: 20070707
  Serious: Yes (Death)
  Sender: FDA-Public Use
  Company Number: 2006S1011569

PATIENT
  Age: 60 Year
  Sex: Female
  Weight: 36.7414 kg

DRUGS (2)
  1. FENTANYL TRANSDERMAL SYSTEM [Suspect]
     Indication: BACK PAIN
     Dosage: 75 UG/HR; ONCE; TRANSDERMAL
     Route: 062
     Dates: start: 20060501, end: 20060501
  2. FENTANYL TRANSDERMAL SYSTEM [Suspect]
     Indication: NECK PAIN
     Dosage: 75 UG/HR; ONCE; TRANSDERMAL
     Route: 062
     Dates: start: 20060501, end: 20060501

REACTIONS (2)
  - ACCIDENTAL OVERDOSE [None]
  - DRUG TOXICITY [None]
